FAERS Safety Report 19079031 (Version 32)
Quarter: 2025Q2

REPORT INFORMATION
  Report Type: Report from Study
  Country: US (occurrence: US)
  Receive Date: 20210331
  Receipt Date: 20250507
  Transmission Date: 20250716
  Serious: Yes (Hospitalization, Other)
  Sender: TAKEDA
  Company Number: US-SHIRE-US202021951

PATIENT
  Age: 75 Year
  Sex: Female
  Weight: 54 kg

DRUGS (80)
  1. TEDUGLUTIDE [Suspect]
     Active Substance: TEDUGLUTIDE
     Indication: Short-bowel syndrome
     Dosage: UNK UNK, QD
     Dates: start: 20180207
  2. TEDUGLUTIDE [Suspect]
     Active Substance: TEDUGLUTIDE
     Dosage: 0.272 MILLILITER, QD
  3. TEDUGLUTIDE [Suspect]
     Active Substance: TEDUGLUTIDE
     Dosage: 0.272 MILLILITER, QD
  4. TEDUGLUTIDE [Suspect]
     Active Substance: TEDUGLUTIDE
     Dosage: 0.272 MILLILITER, QD
  5. TEDUGLUTIDE [Suspect]
     Active Substance: TEDUGLUTIDE
     Dosage: 2.7 MILLIGRAM
  6. TEDUGLUTIDE [Suspect]
     Active Substance: TEDUGLUTIDE
     Dosage: 2.7 MILLIGRAM
  7. TEDUGLUTIDE [Suspect]
     Active Substance: TEDUGLUTIDE
     Dosage: 2.7 MILLIGRAM
  8. TEDUGLUTIDE [Suspect]
     Active Substance: TEDUGLUTIDE
     Dosage: 2.7 MILLIGRAM, QD
  9. TEDUGLUTIDE [Suspect]
     Active Substance: TEDUGLUTIDE
     Dosage: 2.7 MILLIGRAM, QD
  10. TEDUGLUTIDE [Suspect]
     Active Substance: TEDUGLUTIDE
     Dosage: 2.7 MILLIGRAM, QD
  11. TEDUGLUTIDE [Suspect]
     Active Substance: TEDUGLUTIDE
     Dosage: 2.7 MILLIGRAM, QD
  12. TEDUGLUTIDE [Suspect]
     Active Substance: TEDUGLUTIDE
     Dosage: UNK UNK, QD
  13. TEDUGLUTIDE [Suspect]
     Active Substance: TEDUGLUTIDE
     Dosage: 2.7 MILLIGRAM, QD
  14. AMINO ACIDS\DEXTROSE\ELECTROLYTES NOS\SOYBEAN OIL [Suspect]
     Active Substance: AMINO ACIDS\DEXTROSE\ELECTROLYTES NOS\SOYBEAN OIL
     Indication: Product used for unknown indication
  15. OMEPRAZOLE [Concomitant]
     Active Substance: OMEPRAZOLE
  16. FORTEO [Concomitant]
     Active Substance: TERIPARATIDE
  17. INTRALIPID [Concomitant]
     Active Substance: EGG PHOSPHOLIPIDS\GLYCERIN\SOYBEAN OIL
  18. AMIODARONE HYDROCHLORIDE [Concomitant]
     Active Substance: AMIODARONE HYDROCHLORIDE
  19. TUMS [Concomitant]
     Active Substance: CALCIUM CARBONATE
  20. DALVANCE [Concomitant]
     Active Substance: DALBAVANCIN HYDROCHLORIDE
  21. MODERNA COVID-19 VACCINE [Concomitant]
     Active Substance: ELASOMERAN
  22. TRAZODONE HCL [Concomitant]
     Active Substance: TRAZODONE HYDROCHLORIDE
  23. TIZANIDINE HYDROCHLORIDE [Concomitant]
     Active Substance: TIZANIDINE HYDROCHLORIDE
  24. PROAIR HFA [Concomitant]
     Active Substance: ALBUTEROL SULFATE
  25. ZOFRAN [Concomitant]
     Active Substance: ONDANSETRON HYDROCHLORIDE
  26. NYSTATIN\TRIAMCINOLONE [Concomitant]
     Active Substance: NYSTATIN\TRIAMCINOLONE
  27. DULOXETINE HYDROCHLORIDE [Concomitant]
     Active Substance: DULOXETINE HYDROCHLORIDE
  28. VITAMIN B12 [Concomitant]
     Active Substance: CYANOCOBALAMIN
  29. VITAMIN D3 [Concomitant]
     Active Substance: CHOLECALCIFEROL
  30. CELEBREX [Concomitant]
     Active Substance: CELECOXIB
  31. SYMBICORT [Concomitant]
     Active Substance: BUDESONIDE\FORMOTEROL FUMARATE DIHYDRATE
  32. BENADRYL [Concomitant]
     Active Substance: DIPHENHYDRAMINE HYDROCHLORIDE
  33. OXYCODONE HYDROCHLORIDE [Concomitant]
     Active Substance: OXYCODONE HYDROCHLORIDE
  34. DURAGESIC [Concomitant]
     Active Substance: FENTANYL
  35. OXYCODONE [Concomitant]
     Active Substance: OXYCODONE
  36. VANCOMYCIN HYDROCHLORIDE [Concomitant]
     Active Substance: VANCOMYCIN HYDROCHLORIDE
  37. SODIUM CHLORIDE [Concomitant]
     Active Substance: SODIUM CHLORIDE
  38. LORAZEPAM [Concomitant]
     Active Substance: LORAZEPAM
  39. ALBUTEROL [Concomitant]
     Active Substance: ALBUTEROL
  40. BUDESONIDE\FORMOTEROL [Concomitant]
     Active Substance: BUDESONIDE\FORMOTEROL
  41. CALCIUM CARBONATE [Concomitant]
     Active Substance: CALCIUM CARBONATE
     Indication: Antacid therapy
  42. CELECOXIB [Concomitant]
     Active Substance: CELECOXIB
  43. CYANOCOBALAMIN [Concomitant]
     Active Substance: CYANOCOBALAMIN
  44. DALBAVANCIN [Concomitant]
     Active Substance: DALBAVANCIN
  45. DEXTROSE [Concomitant]
     Active Substance: DEXTROSE MONOHYDRATE
  46. DICLOFENAC [Concomitant]
     Active Substance: DICLOFENAC
  47. DICYCLOMINE [Concomitant]
     Active Substance: DICYCLOMINE HYDROCHLORIDE
  48. DILTIAZEM [Concomitant]
     Active Substance: DILTIAZEM
  49. DIPHENOXYLATE HYDROCHLORIDE AND ATROPINE SULFATE [Concomitant]
     Active Substance: ATROPINE SULFATE\DIPHENOXYLATE HYDROCHLORIDE
  50. DULOXETINE [Concomitant]
     Active Substance: DULOXETINE
  51. FENTANYL [Concomitant]
     Active Substance: FENTANYL
  52. FLUTICASONE [Concomitant]
     Active Substance: FLUTICASONE
  53. GABAPENTIN [Concomitant]
     Active Substance: GABAPENTIN
  54. HEPARIN LOCK FLUSH [Concomitant]
     Active Substance: HEPARIN SODIUM
  55. IPRATROPIUM BROMIDE AND ALBUTEROL SULFATE [Concomitant]
     Active Substance: ALBUTEROL SULFATE\IPRATROPIUM BROMIDE
  56. KETOCONAZOLE [Concomitant]
     Active Substance: KETOCONAZOLE
  57. LOPERAMIDE [Concomitant]
     Active Substance: LOPERAMIDE
  58. NARCAN [Concomitant]
     Active Substance: NALOXONE HYDROCHLORIDE
  59. NYSTATIN [Concomitant]
     Active Substance: NYSTATIN
  60. OCTREOTIDE [Concomitant]
     Active Substance: OCTREOTIDE
  61. RIVAROXABAN [Concomitant]
     Active Substance: RIVAROXABAN
  62. ZOLOFT [Concomitant]
     Active Substance: SERTRALINE HYDROCHLORIDE
  63. SODIUM BICARBONATE [Concomitant]
     Active Substance: SODIUM BICARBONATE
  64. SODIUM CHLORIDE [Concomitant]
     Active Substance: SODIUM CHLORIDE
  65. AMPICILLIN [Concomitant]
     Active Substance: AMPICILLIN
  66. AMOXICILLIN\CLAVULANIC ACID [Concomitant]
     Active Substance: AMOXICILLIN\CLAVULANIC ACID
  67. PIPERACILLIN AND TAZOBACTAM [Concomitant]
     Active Substance: PIPERACILLIN SODIUM\TAZOBACTAM SODIUM
  68. CEFTAZIDIME [Concomitant]
     Active Substance: CEFTAZIDIME
  69. CEFTRIAXONE [Concomitant]
     Active Substance: CEFTRIAXONE
  70. CEFEPIME [Concomitant]
     Active Substance: CEFEPIME HYDROCHLORIDE
  71. MEROPENEM [Concomitant]
     Active Substance: MEROPENEM
  72. AMIKACIN [Concomitant]
     Active Substance: AMIKACIN
  73. GENTAMICIN [Concomitant]
     Active Substance: GENTAMICIN
  74. TOBRAMYCIN [Concomitant]
     Active Substance: TOBRAMYCIN
  75. LEVOFLOXACIN [Concomitant]
     Active Substance: LEVOFLOXACIN
  76. CEFAZOLIN [Concomitant]
     Active Substance: CEFAZOLIN
  77. TETRACYCLINE [Concomitant]
     Active Substance: TETRACYCLINE
  78. NITROFURANTOIN [Concomitant]
     Active Substance: NITROFURANTOIN
  79. SULFAMETHOXAZOLE\TRIMETHOPRIM [Concomitant]
     Active Substance: SULFAMETHOXAZOLE\TRIMETHOPRIM
  80. MICAFUNGIN [Concomitant]
     Active Substance: MICAFUNGIN SODIUM

REACTIONS (20)
  - Tendon rupture [Recovered/Resolved]
  - Fungal infection [Not Recovered/Not Resolved]
  - Vascular device infection [Recovered/Resolved]
  - Staphylococcal infection [Not Recovered/Not Resolved]
  - Fistula [Not Recovered/Not Resolved]
  - Post procedural infection [Recovered/Resolved]
  - Weight decreased [Recovered/Resolved with Sequelae]
  - Injection site mass [Recovered/Resolved]
  - Needle issue [Recovered/Resolved]
  - Product dose omission issue [Recovered/Resolved]
  - Gastrointestinal stoma output increased [Recovering/Resolving]
  - Weight abnormal [Unknown]
  - Injection site pain [Recovered/Resolved]
  - Nausea [Not Recovered/Not Resolved]
  - Pyrexia [Recovered/Resolved]
  - Respiratory syncytial virus infection [Recovered/Resolved]
  - Malaise [Recovered/Resolved]
  - COVID-19 [Recovered/Resolved]
  - Insurance issue [Recovered/Resolved]
  - Product use issue [Recovered/Resolved]

NARRATIVE: CASE EVENT DATE: 20200725
